FAERS Safety Report 4314312-3 (Version None)
Quarter: 2004Q1

REPORT INFORMATION
  Report Type: 
  Country: None (occurrence: None)
  Receive Date: 20040309
  Receipt Date: 20030603
  Transmission Date: 20041129
  Serious: Yes (Hospitalization)
  Sender: FDA-Public Use
  Company Number: WAES 0306USA00210

PATIENT
  Age: 47 Year
  Sex: Female
  Weight: 58 kg

DRUGS (8)
  1. FOSAMAX [Suspect]
     Indication: OSTEOPOROSIS
     Route: 048
     Dates: start: 20021220, end: 20030520
  2. AMBROXOL HYDROCHLORIDE [Concomitant]
     Dates: start: 20010501, end: 20030520
  3. BUDESONIDE [Concomitant]
     Dates: start: 20010501
  4. CLENBUTEROL HYDROCHLORIDE [Concomitant]
     Dates: start: 20010501, end: 20030520
  5. LANSOPRAZOLE [Suspect]
     Indication: REFLUX OESOPHAGITIS
     Route: 048
     Dates: start: 20030414, end: 20030520
  6. MINOCYCLINE HYDROCHLORIDE [Concomitant]
     Dates: start: 20010501, end: 20030520
  7. PRANLUKAST [Concomitant]
     Dates: start: 20010501, end: 20030520
  8. THEOPHYLLINE [Concomitant]
     Dates: start: 20010501, end: 20030520

REACTIONS (9)
  - ALANINE AMINOTRANSFERASE INCREASED [None]
  - ASPARTATE AMINOTRANSFERASE INCREASED [None]
  - BLOOD ALKALINE PHOSPHATASE INCREASED [None]
  - BLOOD BILIRUBIN INCREASED [None]
  - BLOOD LACTATE DEHYDROGENASE INCREASED [None]
  - GAMMA-GLUTAMYLTRANSFERASE INCREASED [None]
  - HEPATIC FUNCTION ABNORMAL [None]
  - INTERSTITIAL LUNG DISEASE [None]
  - PLATELET COUNT INCREASED [None]
